FAERS Safety Report 8524295-8 (Version None)
Quarter: 2012Q3

REPORT INFORMATION
  Report Type: 
  Country: None (occurrence: None)
  Receive Date: 20120720
  Receipt Date: 20120711
  Transmission Date: 20120928
  Serious: Yes (Hospitalization)
  Sender: FDA-Public Use
  Company Number: BG-ASTRAZENECA-2012SE49167

PATIENT
  Age: 25753 Day
  Sex: Male

DRUGS (5)
  1. CONCOR [Concomitant]
     Indication: CORONARY ARTERY DISEASE
  2. BRILINTA [Suspect]
     Indication: CORONARY ARTERY DISEASE
     Route: 048
     Dates: start: 20120315, end: 20120405
  3. CRESTOR [Concomitant]
     Indication: HYPERCHOLESTEROLAEMIA
     Route: 048
  4. ASPIRIN [Suspect]
     Route: 048
  5. CONCOR [Concomitant]
     Indication: HYPERTENSION

REACTIONS (1)
  - DUODENAL ULCER [None]
